FAERS Safety Report 11990537 (Version 1)
Quarter: 2016Q1

REPORT INFORMATION
  Report Type: Spontaneous
  Country: ES (occurrence: ES)
  Receive Date: 20160202
  Receipt Date: 20160202
  Transmission Date: 20160526
  Serious: Yes (Death)
  Sender: FDA-Public Use
  Company Number: ES-CELGENE-ESP-2016014422

PATIENT

DRUGS (2)
  1. ABRAXANE [Suspect]
     Active Substance: PACLITAXEL
     Indication: PANCREATIC CARCINOMA METASTATIC
     Route: 041
     Dates: start: 201305, end: 201505
  2. FOLFIRINOX [Suspect]
     Active Substance: FLUOROURACIL\IRINOTECAN\LEUCOVORIN\OXALIPLATIN
     Indication: PANCREATIC CARCINOMA METASTATIC
     Route: 065
     Dates: start: 201305, end: 201505

REACTIONS (5)
  - Haematotoxicity [Unknown]
  - Neuropathy peripheral [Unknown]
  - Adenocarcinoma pancreas [Fatal]
  - Dyspepsia [Unknown]
  - Diarrhoea [Unknown]
